FAERS Safety Report 11756841 (Version 1)
Quarter: 2015Q4

REPORT INFORMATION
  Report Type: Spontaneous
  Country: GB (occurrence: GB)
  Receive Date: 20151120
  Receipt Date: 20151120
  Transmission Date: 20160304
  Serious: Yes (Hospitalization)
  Sender: FDA-Public Use
  Company Number: GB-ACCORD-035369

PATIENT
  Age: 66 Year
  Sex: Female
  Weight: 54 kg

DRUGS (8)
  1. ATORVASTATIN [Concomitant]
     Active Substance: ATORVASTATIN
  2. CISPLATIN. [Suspect]
     Active Substance: CISPLATIN
     Indication: OROPHARYNGEAL SQUAMOUS CELL CARCINOMA
     Dosage: STRENGTH: 100 MG/M^2?CYCLE 2 SINGLE AGENT CISPLATIN (CYCLE ONE AND TWO DOSE REDUCED TO 80 MG/M^2)
     Route: 042
     Dates: start: 20151013, end: 20151013
  3. NICOTINAMIDE/PYRIDOXINE HYDROCHLORIDE/RIBOFLAVIN SODIUM PHOSPHATE/THIAMINE HYDROCHLORIDE [Concomitant]
  4. ADCAL-D3 [Concomitant]
     Active Substance: CALCIUM CARBONATE\CHOLECALCIFEROL
  5. AMITRIPTYLINE [Concomitant]
     Active Substance: AMITRIPTYLINE
  6. AMLODIPINE [Concomitant]
     Active Substance: AMLODIPINE BESYLATE
  7. BISOPROLOL [Concomitant]
     Active Substance: BISOPROLOL
  8. THIAMINE. [Concomitant]
     Active Substance: THIAMINE

REACTIONS (2)
  - Mucosal inflammation [Unknown]
  - Acute kidney injury [Recovered/Resolved]

NARRATIVE: CASE EVENT DATE: 20151021
